FAERS Safety Report 5680969-8 (Version None)
Quarter: 2008Q1

REPORT INFORMATION
  Report Type: 
  Country: None (occurrence: None)
  Receive Date: 20080326
  Receipt Date: 20080314
  Transmission Date: 20080703
  Serious: Yes (Other)
  Sender: FDA-Public Use
  Company Number: US-PFIZER INC-2008024010

PATIENT
  Sex: Male

DRUGS (3)
  1. CHANTIX [Suspect]
  2. TESTOSTERONE [Suspect]
  3. NORVIR [Concomitant]
     Indication: HIV INFECTION

REACTIONS (10)
  - ABNORMAL BEHAVIOUR [None]
  - ABNORMAL DREAMS [None]
  - AGITATION [None]
  - AMNESIA [None]
  - ANGER [None]
  - ANXIETY [None]
  - DISTURBANCE IN ATTENTION [None]
  - FEELING ABNORMAL [None]
  - FRUSTRATION [None]
  - SUICIDAL IDEATION [None]
